FAERS Safety Report 19116194 (Version 1)
Quarter: 2021Q2

REPORT INFORMATION
  Report Type: Spontaneous
  Country: US (occurrence: US)
  Receive Date: 20210409
  Receipt Date: 20210409
  Transmission Date: 20210717
  Serious: No
  Sender: FDA-Public Use
  Company Number: US-CSPC OUYI PHARMACEUTICAL CO., LTD.-2109117

PATIENT

DRUGS (1)
  1. METFORMIN HYDROCHLORIDE EXTEND?RELEASE [Suspect]
     Active Substance: METFORMIN HYDROCHLORIDE

REACTIONS (1)
  - Dysgeusia [Unknown]
